FAERS Safety Report 12725263 (Version 1)
Quarter: 2016Q3

REPORT INFORMATION
  Report Type: Spontaneous
  Country: US (occurrence: US)
  Receive Date: 20160906
  Receipt Date: 20160906
  Transmission Date: 20161109
  Serious: Yes (Life-Threatening)
  Sender: FDA-Public Use
  Company Number: None

PATIENT
  Age: 67 Year
  Sex: Male
  Weight: 77.11 kg

DRUGS (4)
  1. WARFARIN SODIUM. [Concomitant]
     Active Substance: WARFARIN SODIUM
  2. MAGNESIUM [Concomitant]
     Active Substance: MAGNESIUM
  3. MENS ^ONE A DAY^ VITAMIN [Concomitant]
  4. METOPROLOL SUCC ER TABS 25MG [Suspect]
     Active Substance: METOPROLOL SUCCINATE
     Indication: MITRAL VALVE INCOMPETENCE
     Dosage: 90 PILLS ONE DAILY BY MOUTH
     Route: 048
     Dates: start: 20160327, end: 20160820

REACTIONS (9)
  - Tinnitus [None]
  - Peripheral swelling [None]
  - Joint swelling [None]
  - Rash [None]
  - Dyspnoea at rest [None]
  - Hot flush [None]
  - Ear pain [None]
  - Insomnia [None]
  - Decreased appetite [None]

NARRATIVE: CASE EVENT DATE: 20160516
